FAERS Safety Report 12154524 (Version 2)
Quarter: 2016Q2

REPORT INFORMATION
  Report Type: Spontaneous
  Country: US (occurrence: US)
  Receive Date: 20160307
  Receipt Date: 20160406
  Transmission Date: 20160815
  Serious: No
  Sender: FDA-Public Use
  Company Number: US-PFIZER INC-2016092284

PATIENT
  Age: 50 Year
  Sex: Female
  Weight: 51 kg

DRUGS (2)
  1. CEFADROXIL. [Concomitant]
     Active Substance: CEFADROXIL
     Indication: PARONYCHIA
     Dosage: 500 MG, 2X/DAY
     Dates: start: 20160127, end: 20160203
  2. CLINDAMYCIN HCL [Suspect]
     Active Substance: CLINDAMYCIN HYDROCHLORIDE
     Indication: PARONYCHIA
     Dosage: 300 MG, EVERY 6 HOURS
     Dates: start: 20160203, end: 20160212

REACTIONS (2)
  - Rash [Recovered/Resolved]
  - Pruritus [Recovered/Resolved]

NARRATIVE: CASE EVENT DATE: 20160212
